FAERS Safety Report 11849924 (Version 3)
Quarter: 2016Q1

REPORT INFORMATION
  Report Type: Spontaneous
  Country: JP (occurrence: JP)
  Receive Date: 20151218
  Receipt Date: 20160229
  Transmission Date: 20160526
  Serious: Yes (Other)
  Sender: FDA-Public Use
  Company Number: JP-PFIZER INC-2015438850

PATIENT
  Age: 70 Year
  Sex: Male

DRUGS (4)
  1. OPALMON [Concomitant]
     Active Substance: LIMAPROST
     Dosage: 5 UG, 2X/DAY
     Route: 048
  2. LYRICA [Suspect]
     Active Substance: PREGABALIN
     Indication: NEURALGIA
     Dosage: 75 MG, 2X/DAY
     Route: 048
     Dates: start: 20150511, end: 20151125
  3. RINLAXER [Concomitant]
     Active Substance: CHLORPHENESIN CARBAMATE
     Dosage: 250 MG, 2X/DAY
     Route: 048
  4. SOLANTAL [Concomitant]
     Active Substance: TIARAMIDE
     Dosage: 100 MG, 2X/DAY
     Route: 048

REACTIONS (1)
  - Glaucoma [Recovering/Resolving]

NARRATIVE: CASE EVENT DATE: 20151027
